FAERS Safety Report 9813447 (Version 2)
Quarter: 2014Q2

REPORT INFORMATION
  Report Type: Spontaneous
  Country: JP (occurrence: JP)
  Receive Date: 20140113
  Receipt Date: 20140527
  Transmission Date: 20141212
  Serious: Yes (Death)
  Sender: FDA-Public Use
  Company Number: PHJP2014JP000448

PATIENT
  Age: 80 Year
  Sex: Female
  Weight: 45 kg

DRUGS (12)
  1. TEGRETOL [Suspect]
     Indication: CONVULSION
     Dosage: 50 MG, BID
     Route: 048
     Dates: start: 20131126, end: 20131129
  2. E KEPPRA [Suspect]
     Indication: CONVULSION
     Dosage: 500 MG, BID
     Route: 048
     Dates: start: 20131126
  3. FOSTOIN [Suspect]
     Indication: CONVULSION
     Dosage: 375 MG, QD
     Route: 042
     Dates: start: 20131126, end: 20131127
  4. THYRADIN-S [Concomitant]
     Dosage: UNK
     Route: 048
  5. CORTRIL [Concomitant]
     Dosage: UNK
     Route: 048
  6. PASIL [Concomitant]
     Dosage: UNK
     Route: 048
  7. DEPAS [Concomitant]
     Dosage: UNK
     Route: 048
  8. ADONA [Concomitant]
     Dosage: UNK
     Route: 042
  9. TRANSAMIN [Concomitant]
     Dosage: UNK
     Route: 065
  10. GLYCERIN [Concomitant]
     Dosage: UNK
     Route: 041
  11. PERDIPINE [Concomitant]
     Dosage: UNK
     Route: 042
  12. HORIZON [Concomitant]
     Dosage: UNK
     Route: 065

REACTIONS (3)
  - Hepatic function abnormal [Fatal]
  - Drug-induced liver injury [None]
  - Hepatic failure [None]
